FAERS Safety Report 20735395 (Version 1)
Quarter: 2022Q2

REPORT INFORMATION
  Report Type: Spontaneous
  Country: IN (occurrence: IN)
  Receive Date: 20220421
  Receipt Date: 20220421
  Transmission Date: 20220720
  Serious: Yes (Other)
  Sender: FDA-Public Use
  Company Number: IN-MSNLABS-2022MSNSPO00299

PATIENT

DRUGS (5)
  1. SILODOSIN [Suspect]
     Active Substance: SILODOSIN
     Indication: Benign prostatic hyperplasia
     Route: 048
     Dates: start: 2014
  2. SILODOSIN [Suspect]
     Active Substance: SILODOSIN
     Route: 048
     Dates: start: 20220305, end: 20220318
  3. SILODOSIN [Suspect]
     Active Substance: SILODOSIN
     Route: 048
     Dates: start: 20220318
  4. Mehfil [Concomitant]
     Indication: Hypertension
     Route: 048
     Dates: start: 2014
  5. LEVOTHYROXINE [Concomitant]
     Active Substance: LEVOTHYROXINE
     Indication: Hypothyroidism
     Dosage: 27 MCG
     Route: 048
     Dates: start: 2021

REACTIONS (4)
  - Urine flow decreased [Recovered/Resolved]
  - Drug ineffective [Recovered/Resolved]
  - Urinary hesitation [Recovered/Resolved]
  - Abdominal pain lower [Recovered/Resolved]

NARRATIVE: CASE EVENT DATE: 20220315
